FAERS Safety Report 12840140 (Version 1)
Quarter: 2016Q4

REPORT INFORMATION
  Report Type: Report from Study
  Country: None (occurrence: BR)
  Receive Date: 20161012
  Receipt Date: 20161012
  Transmission Date: 20170207
  Serious: Yes (Hospitalization)
  Sender: FDA-Public Use
  Company Number: BR-ABBVIE-16K-020-1745503-00

PATIENT
  Age: 46 Year
  Sex: Male
  Weight: 90 kg

DRUGS (1)
  1. HUMIRA [Suspect]
     Active Substance: ADALIMUMAB
     Indication: PSORIATIC ARTHROPATHY
     Route: 058
     Dates: start: 20150407, end: 201607

REACTIONS (4)
  - Weight decreased [Recovered/Resolved]
  - Alcoholic liver disease [Recovering/Resolving]
  - Ascites [Recovering/Resolving]
  - Splenic infection [Recovering/Resolving]

NARRATIVE: CASE EVENT DATE: 201609
